FAERS Safety Report 10928610 (Version 1)
Quarter: 2015Q1

REPORT INFORMATION
  Report Type: Spontaneous
  Country: US (occurrence: None)
  Receive Date: 20150317
  Receipt Date: 20150317
  Transmission Date: 20150721
  Serious: No
  Sender: FDA-Public Use
  Company Number: None

PATIENT
  Age: 81 Year
  Sex: Female

DRUGS (1)
  1. PROLIA [Suspect]
     Active Substance: DENOSUMAB
     Indication: OSTEOPOROSIS
     Dates: start: 20140922

REACTIONS (5)
  - Quality of life decreased [None]
  - Pain in jaw [None]
  - Arthralgia [None]
  - Back pain [None]
  - Disturbance in attention [None]

NARRATIVE: CASE EVENT DATE: 20140927
